FAERS Safety Report 6258346-0 (Version None)
Quarter: 2009Q3

REPORT INFORMATION
  Report Type: 
  Country: None (occurrence: None)
  Receive Date: 20090701
  Receipt Date: 20080528
  Transmission Date: 20100115
  Serious: Yes (Other)
  Sender: FDA-Public Use
  Company Number: 566890

PATIENT
  Age: 44 Year
  Sex: Male

DRUGS (1)
  1. KLONOPIN [Suspect]
     Indication: TINNITUS
     Dosage: 2MG 1 PER DAT ORAL
     Route: 048

REACTIONS (2)
  - AMNESIA [None]
  - CONFUSIONAL STATE [None]
